FAERS Safety Report 7462623-5 (Version None)
Quarter: 2011Q2

REPORT INFORMATION
  Report Type: 
  Country: None (occurrence: None)
  Receive Date: 20110506
  Receipt Date: 20110425
  Transmission Date: 20111010
  Serious: Yes (Disabling)
  Sender: FDA-Public Use
  Company Number: PHHY2011JP35319

PATIENT
  Age: 52 Year
  Sex: Male
  Weight: 120 kg

DRUGS (3)
  1. TEGRETOL [Suspect]
     Indication: TRIGEMINAL NEURALGIA
     Dosage: 200 MG, TID
     Route: 048
     Dates: start: 20110331
  2. LOXONIN [Concomitant]
     Dosage: UNK
     Route: 048
  3. CEFZON [Concomitant]
     Dosage: UNK
     Route: 048

REACTIONS (1)
  - AKATHISIA [None]
